FAERS Safety Report 25260498 (Version 1)
Quarter: 2025Q2

REPORT INFORMATION
  Report Type: Spontaneous
  Country: US (occurrence: US)
  Receive Date: 20250501
  Receipt Date: 20250501
  Transmission Date: 20250716
  Serious: No
  Sender: Tarsus Pharmaceuticals
  Company Number: US-TARSUS PHARMACEUTICALS-TSP-US-2025-000064

PATIENT

DRUGS (3)
  1. XDEMVY [Suspect]
     Active Substance: LOTILANER
     Indication: Product used for unknown indication
     Dosage: 1 DROP, BID INTO BOTH EYES 12 HOURS APART FOR 6 WEEKS
     Route: 047
  2. LEVOTHYROXINE [Concomitant]
     Active Substance: LEVOTHYROXINE
     Indication: Thyroid hormones increased
     Route: 065
  3. LUMIGAN [Concomitant]
     Active Substance: BIMATOPROST
     Indication: Thyroid hormones increased
     Route: 065

REACTIONS (3)
  - Product use issue [Unknown]
  - Therapeutic response decreased [Unknown]
  - Device difficult to use [Unknown]
